FAERS Safety Report 12336205 (Version 2)
Quarter: 2016Q2

REPORT INFORMATION
  Report Type: Spontaneous
  Country: US (occurrence: US)
  Receive Date: 20160505
  Receipt Date: 20160525
  Transmission Date: 20160815
  Serious: No
  Sender: FDA-Public Use
  Company Number: US-PFIZER INC-2016240885

PATIENT
  Age: 80 Year
  Sex: Male
  Weight: 86.18 kg

DRUGS (2)
  1. CALTRATE [Suspect]
     Active Substance: CALCIUM CARBONATE
     Indication: SEXUAL DYSFUNCTION
     Dosage: UNK
  2. VIAGRA [Suspect]
     Active Substance: SILDENAFIL CITRATE
     Indication: ERECTILE DYSFUNCTION
     Dosage: AS NEEDED, ONCE A WEEK OR ONCE EVERY TWO WEEKS

REACTIONS (3)
  - Dyspepsia [Unknown]
  - Hiccups [Not Recovered/Not Resolved]
  - Product use issue [Unknown]
